FAERS Safety Report 5195622-7 (Version None)
Quarter: 2006Q4

REPORT INFORMATION
  Report Type: 
  Country: None (occurrence: None)
  Receive Date: 20061226
  Receipt Date: 20061226
  Transmission Date: 20070319
  Serious: Yes (Hospitalization)
  Sender: FDA-Public Use
  Company Number: None

PATIENT
  Age: 63 Year
  Sex: Male
  Weight: 83.0083 kg

DRUGS (14)
  1. FUROSEMIDE [Suspect]
     Dosage: 20 MG  DAILY  PO
     Route: 048
     Dates: start: 20050918, end: 20061216
  2. LISINOPRIL [Suspect]
     Dosage: 5 MG   DAILY   PO
     Route: 048
     Dates: start: 20050418, end: 20061216
  3. AMANTADINE HCL [Concomitant]
  4. BACLOFEN [Concomitant]
  5. CARBIDOPA [Concomitant]
  6. GEMFIBROZIL [Concomitant]
  7. LORATADINE [Concomitant]
  8. METFORMIN HCL [Concomitant]
  9. METOPROLOL SUCCINATE [Concomitant]
  10. OMEPRAZOLE [Concomitant]
  11. OXAPROZIN [Concomitant]
  12. PROPOXYPHENE HYDROCHLORIDE [Concomitant]
  13. SIMVASTATIN [Concomitant]
  14. TAMSULOSIN HCL [Concomitant]

REACTIONS (2)
  - BLOOD CREATINE INCREASED [None]
  - PSYCHOTIC DISORDER [None]
